FAERS Safety Report 6420290-3 (Version None)
Quarter: 2009Q4

REPORT INFORMATION
  Report Type: 
  Country: None (occurrence: None)
  Receive Date: 20091029
  Receipt Date: 20091019
  Transmission Date: 20100525
  Serious: Yes (Hospitalization, Other)
  Sender: FDA-Public Use
  Company Number: CA-ABBOTT-08P-028-0475693-01

PATIENT
  Sex: Male
  Weight: 60 kg

DRUGS (7)
  1. HUMIRA [Suspect]
     Indication: CROHN'S DISEASE
     Route: 058
     Dates: start: 20080423, end: 20080903
  2. AZATHIOPRINE [Concomitant]
     Indication: CROHN'S DISEASE
     Dates: start: 20061005
  3. PARIET [Concomitant]
     Indication: GASTROOESOPHAGEAL REFLUX DISEASE
     Dates: start: 20071003
  4. FENTANYL-100 [Concomitant]
     Indication: PAIN
     Dates: start: 20071020
  5. ACTONEL [Concomitant]
     Indication: OSTEOPOROSIS PROPHYLAXIS
     Dates: start: 20070530
  6. OXYCODONE HCL [Concomitant]
     Indication: BREAKTHROUGH PAIN
     Dates: start: 20080101
  7. PREDNISONE [Concomitant]
     Indication: CROHN'S DISEASE
     Dates: start: 20070524

REACTIONS (2)
  - ANAL ABSCESS [None]
  - ANAL FISTULA [None]
